FAERS Safety Report 11713621 (Version 1)
Quarter: 2015Q4

REPORT INFORMATION
  Report Type: Report from Study
  Country: GB (occurrence: GB)
  Receive Date: 20151109
  Receipt Date: 20151109
  Transmission Date: 20160304
  Serious: Yes (Hospitalization)
  Sender: FDA-Public Use
  Company Number: GB-SUN PHARMACEUTICAL INDUSTRIES LTD-2015R1-104165

PATIENT
  Age: 21 Year
  Sex: Female

DRUGS (1)
  1. METRONIDAZOLE. [Suspect]
     Active Substance: METRONIDAZOLE
     Indication: DIARRHOEA
     Dosage: 400 MG TWICE-DAILY
     Route: 048

REACTIONS (3)
  - Cerebrovascular accident [Unknown]
  - Acute hepatic failure [Unknown]
  - Pneumonia aspiration [Unknown]
